FAERS Safety Report 6942469-4 (Version None)
Quarter: 2010Q3

REPORT INFORMATION
  Report Type: 
  Country: None (occurrence: None)
  Receive Date: 20100826
  Receipt Date: 20100817
  Transmission Date: 20110219
  Serious: Yes (Other)
  Sender: FDA-Public Use
  Company Number: US-BAYER-201022847NA

PATIENT
  Age: 51 Year
  Sex: Female
  Weight: 91 kg

DRUGS (30)
  1. MAGNEVIST [Suspect]
     Indication: NUCLEAR MAGNETIC RESONANCE IMAGING ABDOMINAL
     Dosage: TOTAL DAILY DOSE: 20 ML
     Route: 042
     Dates: start: 20060210, end: 20060210
  2. OPTIMARK [Suspect]
     Indication: NUCLEAR MAGNETIC RESONANCE IMAGING ABDOMINAL
     Dosage: AS USED: 40 ML
     Route: 042
     Dates: start: 20051219, end: 20051219
  3. OMNISCAN [Suspect]
     Indication: NUCLEAR MAGNETIC RESONANCE IMAGING ABDOMINAL
     Dosage: AS USED: 20 ML
     Route: 042
     Dates: start: 20070412, end: 20070412
  4. OMNISCAN [Suspect]
     Dates: start: 20070802, end: 20070802
  5. OMNISCAN [Suspect]
     Dosage: AS USED: 15 ML
     Dates: start: 20070914, end: 20070914
  6. UNSPECIFIED GADOLINIUM BASED CONTRAST AGENT [Suspect]
     Indication: NUCLEAR MAGNETIC RESONANCE IMAGING
     Dosage: AS USED: 20 ML
     Dates: start: 20060827, end: 20060827
  7. UNSPECIFIED GADOLINIUM BASED CONTRAST AGENT [Suspect]
     Dates: start: 20090805, end: 20090805
  8. UNSPECIFIED GADOLINIUM BASED CONTRAST AGENT [Suspect]
     Dates: start: 20060828, end: 20060828
  9. COREG [Concomitant]
  10. DIOVAN [Concomitant]
  11. LASIX [Concomitant]
  12. HYTRIN [Concomitant]
  13. SYNTHROID [Concomitant]
  14. ALDACTONE [Concomitant]
  15. INSULIN [Concomitant]
  16. CATAPRES [Concomitant]
  17. CYTOMEL [Concomitant]
  18. LABETALOL HCL [Concomitant]
  19. NORVASC [Concomitant]
  20. LISINOPRIL [Concomitant]
  21. ALTACE [Concomitant]
  22. EPOGEN [Concomitant]
  23. PHOSLO [Concomitant]
  24. INTERFERON THERAPY [Concomitant]
  25. BLOOD TRANSFUSIONS [Concomitant]
     Dosage: EVERY 1 TO 2 MONTHS
  26. SOLU-MEDROL [Concomitant]
  27. ATENOLOL [Concomitant]
  28. BUMETANIDE [Concomitant]
  29. LACTULOSE [Concomitant]
  30. DIPHENHYDRAMINE [Concomitant]

REACTIONS (16)
  - BURNING SENSATION [None]
  - ERYTHEMA [None]
  - NEPHROGENIC SYSTEMIC FIBROSIS [None]
  - OCULAR ICTERUS [None]
  - OEDEMA [None]
  - OEDEMA PERIPHERAL [None]
  - PAIN IN EXTREMITY [None]
  - PEAU D'ORANGE [None]
  - RASH [None]
  - RASH PAPULAR [None]
  - SKIN DISCOLOURATION [None]
  - SKIN EXFOLIATION [None]
  - SKIN HYPERPIGMENTATION [None]
  - SKIN HYPERTROPHY [None]
  - SKIN INDURATION [None]
  - SKIN LESION [None]
